FAERS Safety Report 6064072-3 (Version None)
Quarter: 2009Q1

REPORT INFORMATION
  Report Type: 
  Country: None (occurrence: None)
  Receive Date: 20090204
  Receipt Date: 20090121
  Transmission Date: 20090719
  Serious: Yes (Other)
  Sender: FDA-Public Use
  Company Number: DE-BIOGENIDEC-2008BI029726

PATIENT
  Age: 37 Year
  Sex: Female

DRUGS (2)
  1. TYSABRI [Suspect]
     Indication: RELAPSING-REMITTING MULTIPLE SCLEROSIS
     Route: 042
     Dates: start: 20060901, end: 20080917
  2. BETAFERON [Concomitant]
     Indication: RELAPSING-REMITTING MULTIPLE SCLEROSIS
     Dates: start: 20081029, end: 20081101

REACTIONS (5)
  - EYE DISORDER [None]
  - INFLUENZA LIKE ILLNESS [None]
  - PARESIS [None]
  - PYREXIA [None]
  - QUADRIPARESIS [None]
